FAERS Safety Report 5196043-3 (Version None)
Quarter: 2007Q1

REPORT INFORMATION
  Report Type: 
  Country: None (occurrence: None)
  Receive Date: 20070102
  Receipt Date: 20061205
  Transmission Date: 20070707
  Serious: Yes (Other)
  Sender: FDA-Public Use
  Company Number: JP-ROCHE-474798

PATIENT
  Age: 60 Year
  Sex: Female

DRUGS (7)
  1. TAMIFLU [Suspect]
     Route: 048
     Dates: start: 20060111, end: 20060115
  2. CALONAL [Concomitant]
     Dates: start: 20060111, end: 20060116
  3. LEVOFLOXACIN [Concomitant]
     Dosage: THERAPY INTERRUPTED BETWEEN 11 JANUARY 2006 AND 16 JANUARY 2006.
     Dates: start: 20060110, end: 20060124
  4. KYORIN AP-2 [Concomitant]
     Dates: start: 20060110
  5. RESPLEN [Concomitant]
     Dosage: THERAPY INTERRUPTED BETWEEN 11 JANUARY 2006 AND 16 JANUARY 2006.
     Dates: start: 20060110
  6. MUCOSOLVAN [Concomitant]
     Dosage: THERAPY INTERRUPTED BETWEEN 11 JANUARY 2006 AND 16 JANUARY 2006.
     Dates: start: 20060110
  7. FLOMOX [Concomitant]
     Dates: start: 20060124

REACTIONS (1)
  - HYPERGLYCAEMIA [None]
